FAERS Safety Report 9628605 (Version 1)
Quarter: 2013Q4

REPORT INFORMATION
  Report Type: Spontaneous
  Country: US (occurrence: US)
  Receive Date: 20131017
  Receipt Date: 20131017
  Transmission Date: 20140711
  Serious: Yes (Other)
  Sender: FDA-Public Use
  Company Number: US-JNJFOC-20131005643

PATIENT
  Sex: Female

DRUGS (2)
  1. ZYRTEC IR [Suspect]
     Route: 048
  2. ZYRTEC IR [Suspect]
     Indication: PRODUCT USED FOR UNKNOWN INDICATION
     Route: 048

REACTIONS (1)
  - Fungal infection [Not Recovered/Not Resolved]
